FAERS Safety Report 15776693 (Version 1)
Quarter: 2018Q4

REPORT INFORMATION
  Report Type: Spontaneous
  Country: US (occurrence: US)
  Receive Date: 20181231
  Receipt Date: 20181231
  Transmission Date: 20190205
  Serious: No
  Sender: FDA-Public Use
  Company Number: US-PFIZER INC-2018030508

PATIENT
  Age: 71 Year
  Sex: Male
  Weight: 73.3 kg

DRUGS (2)
  1. GENOTROPIN MQ [Suspect]
     Active Substance: SOMATROPIN
     Indication: ADRENAL DISORDER
     Dosage: 0.4 MG, UNK (IN HIS BELLY OR UPPER QUADRANT OF HIS BUTTOCKS EVERY NIGHT)
  2. GENOTROPIN MQ [Suspect]
     Active Substance: SOMATROPIN
     Dosage: 0.6 MG, DAILY
     Dates: start: 20170626

REACTIONS (7)
  - Blood testosterone increased [Unknown]
  - Product use in unapproved indication [Unknown]
  - Blood homocysteine increased [Unknown]
  - Insomnia [Not Recovered/Not Resolved]
  - Blood bilirubin increased [Unknown]
  - Haemoglobin increased [Unknown]
  - Blood urea increased [Unknown]

NARRATIVE: CASE EVENT DATE: 20180720
